FAERS Safety Report 15385478 (Version 2)
Quarter: 2018Q4

REPORT INFORMATION
  Report Type: Report from Study
  Country: FR (occurrence: FR)
  Receive Date: 20180914
  Receipt Date: 20181115
  Transmission Date: 20190204
  Serious: Yes (Hospitalization)
  Sender: FDA-Public Use
  Company Number: FR-ROCHE-2182718

PATIENT
  Age: 81 Year
  Sex: Male
  Weight: 68 kg

DRUGS (29)
  1. OBINUTUZUMAB. [Suspect]
     Active Substance: OBINUTUZUMAB
     Dosage: C1D2?PLANNED INITIAL INFUSION RATE: 50 AND ACTUAL MAXIMAL INFUSION RATE: 400?START TIME: 12:15 AND E
     Route: 042
     Dates: start: 20140306, end: 20140306
  2. OBINUTUZUMAB. [Suspect]
     Active Substance: OBINUTUZUMAB
     Dosage: C1D15?PLANNED INITIAL INFUSION RATE: 100 AND ACTUAL MAXIMAL INFUSION RATE: 400?START TIME: 11:30 AND
     Route: 042
     Dates: start: 20140319, end: 20140319
  3. OBINUTUZUMAB. [Suspect]
     Active Substance: OBINUTUZUMAB
     Dosage: C6D1?PLANNED INITIAL INFUSION RATE: 100 AND ACTUAL MAXIMAL INFUSION RATE: 400?START TIME: 11:30 AND
     Route: 042
     Dates: start: 20140723, end: 20140723
  4. BENDAMUSTINE [Suspect]
     Active Substance: BENDAMUSTINE
     Dosage: C6D2?START TIME: 12:37 AND END TIME: 13:40
     Route: 042
     Dates: start: 20140724, end: 20140724
  5. ROVAMYCINE [Concomitant]
     Active Substance: SPIRAMYCIN
     Route: 048
     Dates: start: 20171219
  6. VENETOCLAX. [Suspect]
     Active Substance: VENETOCLAX
     Indication: CHRONIC LYMPHOCYTIC LEUKAEMIA
     Route: 065
  7. OBINUTUZUMAB. [Suspect]
     Active Substance: OBINUTUZUMAB
     Dosage: C3D1?PLANNED INITIAL INFUSION RATE: 100 AND ACTUAL MAXIMAL INFUSION RATE: 400?START TIME: 11:50 AND
     Route: 042
     Dates: start: 20140428, end: 20140428
  8. BENDAMUSTINE [Suspect]
     Active Substance: BENDAMUSTINE
     Dosage: C3D2?START TIME: 16:10 AND END TIME: 17:10
     Route: 042
     Dates: start: 20140429, end: 20140429
  9. BENDAMUSTINE [Suspect]
     Active Substance: BENDAMUSTINE
     Dosage: C4D2?START TIME: 15:15 AND END TIME: 16:15
     Route: 042
     Dates: start: 20140528, end: 20140528
  10. KARDEGIC [Concomitant]
     Active Substance: ASPIRIN DL-LYSINE
     Indication: CEREBROVASCULAR ACCIDENT
     Route: 048
     Dates: start: 2000
  11. ROVAMYCINE [Concomitant]
     Active Substance: SPIRAMYCIN
     Dosage: 3 10^6 UNITS
     Route: 048
     Dates: start: 20150819, end: 20150828
  12. CEFOTAXIME [Concomitant]
     Active Substance: CEFOTAXIME SODIUM
     Route: 042
     Dates: start: 20151009, end: 20151020
  13. OBINUTUZUMAB. [Suspect]
     Active Substance: OBINUTUZUMAB
     Dosage: C1D8?PLANNED INITIAL INFUSION RATE: 50 AND ACTUAL MAXIMAL INFUSION RATE: 400?START TIME: 13:35 AND E
     Route: 042
     Dates: start: 20140312, end: 20140312
  14. OBINUTUZUMAB. [Suspect]
     Active Substance: OBINUTUZUMAB
     Dosage: C5D1?PLANNED INITIAL INFUSION RATE: 100 AND ACTUAL MAXIMAL INFUSION RATE: 400?START TIME: 11:00 AND
     Route: 042
     Dates: start: 20140625, end: 20140625
  15. BENDAMUSTINE [Suspect]
     Active Substance: BENDAMUSTINE
     Dosage: C2D1?START TIME: 15:15 AND END TIME: 16:15
     Route: 042
     Dates: start: 20140402, end: 20140402
  16. BENDAMUSTINE [Suspect]
     Active Substance: BENDAMUSTINE
     Dosage: C3D1?START TIME: 15:50 AND END TIME: 16:50
     Route: 042
     Dates: start: 20140428, end: 20140428
  17. BENDAMUSTINE [Suspect]
     Active Substance: BENDAMUSTINE
     Dosage: C5D1?START TIME: 15:15 AND END TIME: 16:15
     Route: 042
     Dates: start: 20140625, end: 20140625
  18. BENDAMUSTINE [Suspect]
     Active Substance: BENDAMUSTINE
     Dosage: C5D2?START TIME: 14:45 AND END TIME: 15:45
     Route: 042
     Dates: start: 20140626, end: 20140626
  19. OBINUTUZUMAB. [Suspect]
     Active Substance: OBINUTUZUMAB
     Dosage: C4D1?PLANNED INITIAL INFUSION RATE: 100 AND ACTUAL MAXIMAL INFUSION RATE: 400?START TIME: 11:00 AND
     Route: 042
     Dates: start: 20140527, end: 20140527
  20. BENDAMUSTINE [Suspect]
     Active Substance: BENDAMUSTINE
     Dosage: C4D1?START TIME: 15:00 AND END TIME: 16:00
     Route: 042
     Dates: start: 20140527, end: 20140527
  21. BENDAMUSTINE [Suspect]
     Active Substance: BENDAMUSTINE
     Dosage: C1D2 ?START TIME: 17:00 AND END TIME: 18:15
     Route: 042
     Dates: start: 20140306, end: 20140306
  22. BENDAMUSTINE [Suspect]
     Active Substance: BENDAMUSTINE
     Dosage: C2D2?START TIME: 14:50 AND END TIME: 15:50
     Route: 042
     Dates: start: 20140403, end: 20140403
  23. GAVISCON (ALGINIC ACID) [Concomitant]
     Active Substance: ALGINIC ACID
     Indication: GASTROOESOPHAGEAL REFLUX DISEASE
     Dosage: 1 TABLESPOON
     Route: 048
     Dates: start: 1995
  24. BENDAMUSTINE [Suspect]
     Active Substance: BENDAMUSTINE
     Indication: CHRONIC LYMPHOCYTIC LEUKAEMIA
     Dosage: C1D1, TEMPORARILY INTERRUPTED DUE TO INFUSION RELATED REACTION, START TIME: 15:25 AND END TIME: 19:0
     Route: 042
     Dates: start: 20140305, end: 20140305
  25. OBINUTUZUMAB. [Suspect]
     Active Substance: OBINUTUZUMAB
     Indication: CHRONIC LYMPHOCYTIC LEUKAEMIA
     Dosage: C1D1?PLANNED INITIAL INFUSION RATE: 12.5 AND ACTUAL MAXIMAL INFUSION RATE: 25?START TIME: 13:00 AND
     Route: 042
     Dates: start: 20140305, end: 20140305
  26. OBINUTUZUMAB. [Suspect]
     Active Substance: OBINUTUZUMAB
     Dosage: C2D1?PLANNED INITIAL INFUSION RATE: 100 AND ACTUAL MAXIMAL INFUSION RATE: 400?START TIME: 11:00 AND
     Route: 042
     Dates: start: 20140402, end: 20140402
  27. BENDAMUSTINE [Suspect]
     Active Substance: BENDAMUSTINE
     Dosage: C6D1?START TIME: 15:35 AND END TIME: 16:35
     Route: 042
     Dates: start: 20140723, end: 20140723
  28. SIMVASTATIN. [Concomitant]
     Active Substance: SIMVASTATIN
     Indication: HYPERCHOLESTEROLAEMIA
     Route: 048
     Dates: start: 2006
  29. CEFOTAXIME [Concomitant]
     Active Substance: CEFOTAXIME SODIUM
     Route: 042
     Dates: start: 20171219

REACTIONS (1)
  - Acute kidney injury [Recovered/Resolved]

NARRATIVE: CASE EVENT DATE: 20180215
